FAERS Safety Report 6526331-7 (Version None)
Quarter: 2010Q1

REPORT INFORMATION
  Report Type: 
  Country: None (occurrence: None)
  Receive Date: 20100105
  Receipt Date: 20091224
  Transmission Date: 20100710
  Serious: Yes (Hospitalization)
  Sender: FDA-Public Use
  Company Number: US-BIOGENIDEC-2009BI041367

PATIENT
  Age: 55 Year
  Sex: Female

DRUGS (9)
  1. TYSABRI [Suspect]
     Indication: MULTIPLE SCLEROSIS
     Route: 042
     Dates: start: 20061221, end: 20091211
  2. TENORMIN [Concomitant]
  3. PROVENTIL [Concomitant]
  4. DEXLANSOPRAZOLE [Concomitant]
  5. NEURONTIN [Concomitant]
  6. PROVIGIL [Concomitant]
  7. PRISTIQ [Concomitant]
  8. LISINOPRIL [Concomitant]
  9. ZOCOR [Concomitant]

REACTIONS (1)
  - CEREBRAL INFARCTION [None]
